FAERS Safety Report 7490145-4 (Version None)
Quarter: 2011Q2

REPORT INFORMATION
  Report Type: 
  Country: None (occurrence: None)
  Receive Date: 20110519
  Receipt Date: 20110514
  Transmission Date: 20111010
  Serious: No
  Sender: FDA-Public Use
  Company Number: US-PFIZER INC-2011104187

PATIENT
  Sex: Female

DRUGS (3)
  1. DIOVAN HCT [Concomitant]
     Indication: HYPERTENSION
     Dosage: HALF OF 320/12.5MG TABLET
     Route: 048
  2. TOVIAZ [Suspect]
     Indication: URINARY INCONTINENCE
     Dosage: 8 MG, 1X/DAY
     Route: 048
     Dates: start: 20110425, end: 20110514
  3. AMLODIPINE BESILATE [Concomitant]
     Indication: HYPERTENSION
     Dosage: 5 MG, 1X/DAY
     Route: 048

REACTIONS (3)
  - DIZZINESS [None]
  - MALAISE [None]
  - FEAR [None]
